FAERS Safety Report 14555845 (Version 1)
Quarter: 2018Q1

REPORT INFORMATION
  Report Type: Report from Study
  Country: None (occurrence: BR)
  Receive Date: 20180221
  Receipt Date: 20180221
  Transmission Date: 20180509
  Serious: Yes (Hospitalization, Other)
  Sender: FDA-Public Use
  Company Number: BR-ABBVIE-17K-020-2026948-00

PATIENT
  Age: 32 Year
  Sex: Female
  Weight: 63 kg

DRUGS (4)
  1. SALINE [Concomitant]
     Active Substance: SODIUM CHLORIDE
     Indication: PRODUCT USED FOR UNKNOWN INDICATION
     Route: 042
     Dates: start: 20170630, end: 20170630
  2. MAGNESIUM SULFATE. [Concomitant]
     Active Substance: MAGNESIUM SULFATE
     Indication: PRODUCT USED FOR UNKNOWN INDICATION
     Route: 042
     Dates: start: 20170630, end: 20170630
  3. DROSPIRENONE [Concomitant]
     Active Substance: DROSPIRENONE
     Indication: CONTRACEPTION
     Route: 048
     Dates: start: 201612
  4. HUMIRA [Suspect]
     Active Substance: ADALIMUMAB
     Indication: ANKYLOSING SPONDYLITIS
     Route: 058
     Dates: start: 20131001, end: 201605

REACTIONS (5)
  - Drug-induced liver injury [Recovered/Resolved]
  - Tuberculosis [Recovering/Resolving]
  - Rhinitis [Not Recovered/Not Resolved]
  - Pain [Unknown]
  - Pneumonia [Recovering/Resolving]

NARRATIVE: CASE EVENT DATE: 2015
